FAERS Safety Report 19623180 (Version 1)
Quarter: 2021Q3

REPORT INFORMATION
  Report Type: Spontaneous
  Country: US (occurrence: US)
  Receive Date: 20210728
  Receipt Date: 20210728
  Transmission Date: 20211014
  Serious: No
  Sender: FDA-Public Use
  Company Number: US-BRISTOL-MYERS SQUIBB COMPANY-BMS-2021-072279

PATIENT
  Age: 71 Year
  Sex: Female
  Weight: 99.79 kg

DRUGS (2)
  1. METOPROLOL. [Concomitant]
     Active Substance: METOPROLOL
     Indication: HEART RATE INCREASED
     Route: 065
  2. ELIQUIS [Suspect]
     Active Substance: APIXABAN
     Indication: CEREBROVASCULAR ACCIDENT PROPHYLAXIS
     Dosage: 5 MILLIGRAM, BID (ONE IN THE MORNING AND ONE IN THE EVENING)
     Route: 048
     Dates: start: 2016

REACTIONS (5)
  - Blood calcium decreased [Unknown]
  - Bowel movement irregularity [Unknown]
  - Constipation [Unknown]
  - Blood magnesium decreased [Unknown]
  - Abdominal discomfort [Unknown]
